FAERS Safety Report 7952628-X (Version None)
Quarter: 2011Q4

REPORT INFORMATION
  Report Type: 
  Country: None (occurrence: None)
  Receive Date: 20111201
  Receipt Date: 20111122
  Transmission Date: 20120403
  Serious: No
  Sender: FDA-Public Use
  Company Number: US-B.I. PHARMACEUTICALS,INC./RIDGEFIELD-2011-BP-26748BP

PATIENT
  Sex: Female

DRUGS (6)
  1. PRADAXA [Suspect]
     Indication: ATRIAL FIBRILLATION
     Dosage: 300 MG
     Route: 048
     Dates: start: 20111116
  2. COQ10 [Concomitant]
     Indication: SUPPLEMENTATION THERAPY
     Dosage: 200 MG
     Route: 048
  3. METOPROLOL [Concomitant]
     Indication: HYPERTENSION
     Dosage: 50 MG
     Route: 048
  4. LISINOPRIL [Concomitant]
     Indication: HYPERTENSION
     Dosage: 5 MG
     Route: 048
  5. ASPIRIN [Concomitant]
     Indication: PROPHYLAXIS
     Dosage: 325 MG
     Route: 048
  6. PRAVASTATIN [Concomitant]
     Indication: BLOOD CHOLESTEROL INCREASED
     Dosage: 40 MG
     Route: 048

REACTIONS (3)
  - DYSPEPSIA [None]
  - HYPERCHLORHYDRIA [None]
  - ABDOMINAL DISCOMFORT [None]
